FAERS Safety Report 18857668 (Version 6)
Quarter: 2022Q3

REPORT INFORMATION
  Report Type: Spontaneous
  Country: US (occurrence: US)
  Receive Date: 20210208
  Receipt Date: 20220728
  Transmission Date: 20221027
  Serious: Yes (Other)
  Sender: FDA-Public Use
  Company Number: US-BEH-2021127887

PATIENT
  Age: 84 Year
  Sex: Male

DRUGS (19)
  1. HAEGARDA [Suspect]
     Active Substance: HUMAN C1-ESTERASE INHIBITOR
     Indication: Hereditary angioedema
     Dosage: 2000 INTERNATIONAL UNIT, OTHER
     Route: 058
     Dates: start: 2017
  2. HAEGARDA [Suspect]
     Active Substance: HUMAN C1-ESTERASE INHIBITOR
     Indication: Prophylaxis
     Dosage: 4800 INTERNATIONAL UNIT, BIW
     Route: 058
     Dates: start: 20200901
  3. HAEGARDA [Suspect]
     Active Substance: HUMAN C1-ESTERASE INHIBITOR
     Dosage: 4800 INTERNATIONAL UNIT, BIW
     Route: 058
     Dates: start: 20201126
  4. HAEGARDA [Suspect]
     Active Substance: HUMAN C1-ESTERASE INHIBITOR
     Dosage: UNK
     Route: 058
  5. HAEGARDA [Suspect]
     Active Substance: HUMAN C1-ESTERASE INHIBITOR
     Dosage: 4800 INTERNATIONAL UNIT
     Route: 058
     Dates: start: 202008
  6. HAEGARDA [Suspect]
     Active Substance: HUMAN C1-ESTERASE INHIBITOR
     Indication: Hereditary angioedema
     Dosage: 4800 INTERNATIONAL UNIT, BIW
     Route: 058
     Dates: start: 20200901
  7. HAEGARDA [Suspect]
     Active Substance: HUMAN C1-ESTERASE INHIBITOR
     Indication: Prophylaxis
     Dosage: 4800 INTERNATIONAL UNIT, BIW
     Route: 058
     Dates: start: 20201126
  8. HAEGARDA [Suspect]
     Active Substance: HUMAN C1-ESTERASE INHIBITOR
     Indication: Hereditary angioedema
     Dosage: 3000 INTERNATIONAL UNIT, BIW
     Route: 058
     Dates: start: 20200904
  9. HAEGARDA [Suspect]
     Active Substance: HUMAN C1-ESTERASE INHIBITOR
     Indication: Prophylaxis
     Dosage: 5000 INTERNATIONAL UNIT, BIW
     Route: 065
     Dates: end: 202111
  10. HAEGARDA [Suspect]
     Active Substance: HUMAN C1-ESTERASE INHIBITOR
     Dosage: 3000 INTERNATIONAL UNIT, BIW
     Route: 065
     Dates: start: 202111
  11. ALLEGRA [Concomitant]
     Active Substance: FEXOFENADINE HYDROCHLORIDE
     Dosage: 1 DOSAGE FORM, QD (IN THE MORNING)
  12. ALLEGRA [Concomitant]
     Active Substance: FEXOFENADINE HYDROCHLORIDE
     Dosage: 2 DOSAGE FORM, QD (IN THE MORNING)
  13. PEPCID [Concomitant]
     Active Substance: FAMOTIDINE
     Dosage: 1 DOSAGE FORM, QD (IN THE MORNING)
  14. PEPCID [Concomitant]
     Active Substance: FAMOTIDINE
     Dosage: 2 DOSAGE FORM, QD (IN THE MORNING)
  15. XYZAL [Concomitant]
     Active Substance: LEVOCETIRIZINE DIHYDROCHLORIDE
     Dosage: 2 DOSAGE FORM, QD (AT NIGHT)
  16. SINGULAIR [Concomitant]
     Active Substance: MONTELUKAST SODIUM
     Dosage: 1 DOSAGE FORM, QD (AT NIGHT)
  17. SINGULAIR [Concomitant]
     Active Substance: MONTELUKAST SODIUM
     Dosage: 2 DOSAGE FORM, QD (AT NIGHT)
  18. PREDNISONE [Concomitant]
     Active Substance: PREDNISONE
     Dosage: UNK, PRN
  19. BENADRYL [Concomitant]
     Active Substance: DIPHENHYDRAMINE HYDROCHLORIDE
     Dosage: UNK, AT NIGHT

REACTIONS (18)
  - Hereditary angioedema [Recovering/Resolving]
  - Hereditary angioedema [Recovering/Resolving]
  - Device issue [Unknown]
  - Product preparation issue [Unknown]
  - Syringe issue [Unknown]
  - Device leakage [Unknown]
  - Injection site pain [Unknown]
  - Injection site extravasation [Unknown]
  - Hereditary angioedema [Recovered/Resolved]
  - Injection site pain [Unknown]
  - Injection site bruising [Unknown]
  - No adverse event [Unknown]
  - Device issue [Unknown]
  - Product preparation issue [Unknown]
  - Lip disorder [Unknown]
  - Lip disorder [Unknown]
  - Tongue eruption [Unknown]
  - Tongue eruption [Unknown]

NARRATIVE: CASE EVENT DATE: 20201226
